FAERS Safety Report 22773455 (Version 4)
Quarter: 2023Q4

REPORT INFORMATION
  Report Type: Spontaneous
  Country: US (occurrence: US)
  Receive Date: 20230801
  Receipt Date: 20231208
  Transmission Date: 20240110
  Serious: No
  Sender: FDA-Public Use
  Company Number: US-PFIZER INC-PV202300130888

PATIENT
  Age: 76 Year
  Sex: Female
  Weight: 78.005 kg

DRUGS (1)
  1. IBRANCE [Suspect]
     Active Substance: PALBOCICLIB
     Indication: Bone cancer
     Dosage: 125 MG, 1X/DAY
     Dates: start: 202208

REACTIONS (2)
  - Dysphonia [Unknown]
  - Off label use [Unknown]
